FAERS Safety Report 6489070-7 (Version None)
Quarter: 2009Q4

REPORT INFORMATION
  Report Type: 
  Country: None (occurrence: None)
  Receive Date: 20091123
  Receipt Date: 20091008
  Transmission Date: 20100525
  Serious: No
  Sender: FDA-Public Use
  Company Number: 8053117

PATIENT

DRUGS (2)
  1. CIMZIA [Suspect]
     Indication: CROHN'S DISEASE
     Dosage: 400 MG SC
     Route: 058
     Dates: start: 20080101
  2. ALINIA [Concomitant]

REACTIONS (3)
  - CROHN'S DISEASE [None]
  - MALAISE [None]
  - SWOLLEN TONGUE [None]
